FAERS Safety Report 9768617 (Version 2)
Quarter: 2014Q1

REPORT INFORMATION
  Report Type: Spontaneous
  Country: US (occurrence: US)
  Receive Date: 20131218
  Receipt Date: 20140127
  Transmission Date: 20141002
  Serious: Yes (Death, Hospitalization, Other)
  Sender: FDA-Public Use
  Company Number: US-PFIZER INC-2013358254

PATIENT
  Age: 71 Year
  Sex: Male

DRUGS (4)
  1. REVATIO [Suspect]
     Indication: PULMONARY HYPERTENSION
     Dosage: 20 MG, 3X/DAY
     Dates: start: 201201, end: 20131107
  2. REMODULIN [Concomitant]
     Indication: PULMONARY ARTERIAL HYPERTENSION
     Dosage: 32 NG/KG/MIN
     Dates: start: 201307, end: 20131120
  3. LASIX [Concomitant]
     Dosage: 200 MG, DAILY
  4. K-DUR [Concomitant]
     Dosage: 40 UG, DAILY

REACTIONS (5)
  - Pulmonary hypertension [Fatal]
  - Right ventricular failure [Fatal]
  - Scleroderma [Fatal]
  - Ascites [Unknown]
  - Renal failure acute [Unknown]
